FAERS Safety Report 21724929 (Version 1)
Quarter: 2022Q4

REPORT INFORMATION
  Report Type: Spontaneous
  Country: US (occurrence: US)
  Receive Date: 20221214
  Receipt Date: 20221214
  Transmission Date: 20230112
  Serious: Yes (Hospitalization, Other)
  Sender: FDA-Public Use
  Company Number: US-BRISTOL-MYERS SQUIBB COMPANY-2022-149239

PATIENT
  Age: 60 Year
  Sex: Male

DRUGS (1)
  1. ROMIDEPSIN [Suspect]
     Active Substance: ROMIDEPSIN
     Indication: Cutaneous T-cell lymphoma
     Dosage: ON DAYS 1, 8, AND 15 OF A 28-DAY TREATMENT CYCLE

REACTIONS (2)
  - Staphylococcal infection [Unknown]
  - Streptococcal bacteraemia [Unknown]
